FAERS Safety Report 9227708 (Version 1)
Quarter: 2013Q1

REPORT INFORMATION
  Report Type: Spontaneous
  Country: US (occurrence: None)
  Receive Date: 20121031
  Receipt Date: 20121031
  Transmission Date: 20140127
  Serious: No
  Sender: FDA-Public Use
  Company Number: PHEH2012US015645

PATIENT
  Age: 50 Year
  Sex: Female
  Weight: 61.2 kg

DRUGS (7)
  1. GILENYA ( FTY) CAPSULE, 0.5 MG [Suspect]
     Route: 048
  2. LOSARTAN POTASSIUM ( LOSARTAN POTASSIUM) TABLET [Concomitant]
  3. AMLODIPINE ( AMLODIPINE) [Concomitant]
  4. HYDROCHLOROTHIAZID ( HYDROCHLOROTHIAZIDE) [Concomitant]
  5. PRISTIQ ( DESVENLAFAXINE SUCCINATE) [Concomitant]
  6. APLENZIN ( BUPROPION HYDROBROMIDE) [Concomitant]
  7. TRAMADOL HYDROCHLORIDE ( TRAMADOL HYDROCHLORIDE) [Concomitant]

REACTIONS (1)
  - Pain in extremity [None]
